FAERS Safety Report 25088943 (Version 1)
Quarter: 2025Q1

REPORT INFORMATION
  Report Type: Spontaneous
  Country: US (occurrence: US)
  Receive Date: 20250318
  Receipt Date: 20250318
  Transmission Date: 20250409
  Serious: Yes (Hospitalization, Other)
  Sender: SANDOZ
  Company Number: US-SANDOZ-SDZ2024US107837

PATIENT
  Age: 74 Year
  Sex: Male

DRUGS (3)
  1. ALDACTONE [Suspect]
     Active Substance: SPIRONOLACTONE
     Indication: Product used for unknown indication
     Route: 065
  2. LOTREL [Suspect]
     Active Substance: AMLODIPINE BESYLATE\BENAZEPRIL HYDROCHLORIDE
     Indication: Product used for unknown indication
     Route: 065
  3. METOPROLOL [Suspect]
     Active Substance: METOPROLOL
     Indication: Product used for unknown indication
     Route: 065

REACTIONS (1)
  - BRASH syndrome [Recovering/Resolving]
